FAERS Safety Report 24804909 (Version 1)
Quarter: 2025Q1

REPORT INFORMATION
  Report Type: Spontaneous
  Country: US (occurrence: US)
  Receive Date: 20250103
  Receipt Date: 20250103
  Transmission Date: 20250408
  Serious: Yes (Other)
  Sender: PFIZER
  Company Number: US-PFIZER INC-PV202400168871

PATIENT
  Age: 45 Year
  Sex: Female

DRUGS (2)
  1. TOFACITINIB [Suspect]
     Active Substance: TOFACITINIB
     Indication: Colitis ulcerative
  2. TOFACITINIB [Suspect]
     Active Substance: TOFACITINIB
     Indication: Iron deficiency anaemia

REACTIONS (1)
  - Autoimmune haemolytic anaemia [Recovered/Resolved]
